FAERS Safety Report 6731329-X (Version None)
Quarter: 2010Q2

REPORT INFORMATION
  Report Type: 
  Country: None (occurrence: None)
  Receive Date: 20100517
  Receipt Date: 20100517
  Transmission Date: 20101027
  Serious: Yes (Other)
  Sender: FDA-Public Use
  Company Number: None

PATIENT
  Sex: Female
  Weight: 19.5047 kg

DRUGS (2)
  1. SINGULAIR [Suspect]
     Indication: MULTIPLE ALLERGIES
     Dates: start: 20090129, end: 20100515
  2. SINGULAIR [Suspect]
     Indication: NASAL INFLAMMATION
     Dates: start: 20090129, end: 20100515

REACTIONS (3)
  - ABNORMAL DREAMS [None]
  - SLEEP TERROR [None]
  - SOMNAMBULISM [None]
